FAERS Safety Report 9614505 (Version 3)
Quarter: 2013Q4

REPORT INFORMATION
  Report Type: Report from Study
  Country: US (occurrence: US)
  Receive Date: 20131011
  Receipt Date: 20131030
  Transmission Date: 20140711
  Serious: No
  Sender: FDA-Public Use
  Company Number: US-VERTEX PHARMACEUTICALS INC-2013-010264

PATIENT
  Age: 60 Year
  Sex: Male
  Weight: 72.56 kg

DRUGS (3)
  1. VX-950 (TELAPREVIR) [Suspect]
     Indication: HEPATITIS C
     Dosage: 750 MG, TID
     Route: 048
     Dates: start: 20131004
  2. RIBAVIRIN [Suspect]
     Indication: HEPATITIS C
     Dosage: 600 MG, BID
     Route: 048
     Dates: start: 20131004
  3. PEGASYS [Suspect]
     Indication: HEPATITIS C
     Dosage: UNK, QW INJECTION
     Dates: start: 20131004

REACTIONS (25)
  - Chest pain [Unknown]
  - Hallucination [Recovered/Resolved]
  - Pyrexia [Recovered/Resolved]
  - Sleep disorder [Recovered/Resolved]
  - Injection site erythema [Not Recovered/Not Resolved]
  - Hot flush [Recovered/Resolved]
  - Oral herpes [Not Recovered/Not Resolved]
  - Chills [Not Recovered/Not Resolved]
  - Influenza like illness [Recovered/Resolved]
  - Blister [Not Recovered/Not Resolved]
  - Neuralgia [Recovered/Resolved]
  - Weight decreased [Not Recovered/Not Resolved]
  - Emotional disorder [Not Recovered/Not Resolved]
  - Local swelling [Unknown]
  - Muscle spasms [Unknown]
  - Drug dose omission [Not Recovered/Not Resolved]
  - Aggression [Not Recovered/Not Resolved]
  - Renal pain [Not Recovered/Not Resolved]
  - Neck pain [Not Recovered/Not Resolved]
  - Hypersomnia [Not Recovered/Not Resolved]
  - Asthenia [Not Recovered/Not Resolved]
  - Fatigue [Not Recovered/Not Resolved]
  - Haematochezia [Unknown]
  - Dysgeusia [Not Recovered/Not Resolved]
  - Pruritus [Not Recovered/Not Resolved]
